FAERS Safety Report 7575716-9 (Version None)
Quarter: 2011Q2

REPORT INFORMATION
  Report Type: 
  Country: None (occurrence: None)
  Receive Date: 20110628
  Receipt Date: 20110620
  Transmission Date: 20111010
  Serious: No
  Sender: FDA-Public Use
  Company Number: US-BIOGENIDEC-2010BI045181

PATIENT
  Sex: Female

DRUGS (3)
  1. PROVIGIL [Concomitant]
     Indication: FATIGUE
  2. ARICEPT [Concomitant]
     Indication: MEMORY IMPAIRMENT
  3. TYSABRI [Suspect]
     Indication: MULTIPLE SCLEROSIS
     Route: 042
     Dates: start: 20070220

REACTIONS (7)
  - DEPRESSION [None]
  - MUSCULOSKELETAL DISORDER [None]
  - COGNITIVE DISORDER [None]
  - MEMORY IMPAIRMENT [None]
  - MENTAL STATUS CHANGES [None]
  - VISUAL IMPAIRMENT [None]
  - FATIGUE [None]
